FAERS Safety Report 8502657-2 (Version None)
Quarter: 2012Q2

REPORT INFORMATION
  Report Type: 
  Country: None (occurrence: None)
  Receive Date: 20120629
  Receipt Date: 20120622
  Transmission Date: 20120825
  Serious: Yes (Death, Hospitalization)
  Sender: FDA-Public Use
  Company Number: 2012SP029966

PATIENT
  Age: 52 Year
  Sex: Female

DRUGS (9)
  1. IMDUR [Suspect]
     Indication: HYPERTENSION
     Dosage: 60 MG;QD;
     Dates: start: 20120117, end: 20120118
  2. SOMA [Concomitant]
  3. LISINOPRIL [Concomitant]
  4. ULTRAM [Concomitant]
  5. NORVASC [Concomitant]
  6. NOVOLIN 70/30 [Concomitant]
  7. NEURONTIN [Concomitant]
  8. LORTAB [Concomitant]
  9. GLYBURIDE [Concomitant]

REACTIONS (1)
  - CARDIO-RESPIRATORY ARREST [None]
